FAERS Safety Report 19704042 (Version 1)
Quarter: 2021Q3

REPORT INFORMATION
  Report Type: Spontaneous
  Country: FR (occurrence: FR)
  Receive Date: 20210816
  Receipt Date: 20210816
  Transmission Date: 20211014
  Serious: Yes (Other)
  Sender: FDA-Public Use
  Company Number: FR-AMGEN-FRASP2021124073

PATIENT
  Age: 71 Year
  Sex: Male

DRUGS (6)
  1. OTEZLA [Suspect]
     Active Substance: APREMILAST
     Indication: PSORIASIS
     Dosage: UNK
     Route: 065
  2. NORSET [Concomitant]
     Active Substance: MIRTAZAPINE
     Dosage: 60 MILLIGRAM
  3. COVERSYL [PERINDOPRIL ARGININE] [Concomitant]
     Active Substance: PERINDOPRIL ARGININE
     Dosage: UNK
  4. NEURONTIN [Concomitant]
     Active Substance: GABAPENTIN
     Dosage: UNK
  5. OTEZLA [Suspect]
     Active Substance: APREMILAST
     Dosage: 60 MILLIGRAM, QD
     Route: 065
     Dates: start: 202107
  6. CYMBALTA [Concomitant]
     Active Substance: DULOXETINE HYDROCHLORIDE
     Dosage: UNK

REACTIONS (4)
  - Coronary arterial stent insertion [Unknown]
  - Nausea [Recovered/Resolved]
  - Lung neoplasm malignant [Unknown]
  - Neuralgia [Unknown]

NARRATIVE: CASE EVENT DATE: 202107
